FAERS Safety Report 16549719 (Version 1)
Quarter: 2019Q3

REPORT INFORMATION
  Report Type: Spontaneous
  Country: US (occurrence: US)
  Receive Date: 20190710
  Receipt Date: 20190710
  Transmission Date: 20191004
  Serious: No
  Sender: FDA-Public Use
  Company Number: US-JNJFOC-20190637322

PATIENT

DRUGS (16)
  1. OXYGEN. [Concomitant]
     Active Substance: OXYGEN
     Indication: DYSPNOEA
     Dosage: 3L PER NASAL CANNULA
  2. PEPCID [Suspect]
     Active Substance: FAMOTIDINE
     Indication: CHEST DISCOMFORT
  3. OXYGEN. [Concomitant]
     Active Substance: OXYGEN
     Indication: NASAL CONGESTION
  4. OXYGEN. [Concomitant]
     Active Substance: OXYGEN
     Indication: COUGH
  5. PEPCID [Suspect]
     Active Substance: FAMOTIDINE
     Indication: COUGH
  6. DECADRON [Concomitant]
     Active Substance: DEXAMETHASONE
     Indication: COUGH
  7. PEPCID [Suspect]
     Active Substance: FAMOTIDINE
     Indication: HYPERTENSION
  8. DARZALEX [Concomitant]
     Active Substance: DARATUMUMAB
     Indication: PRODUCT USED FOR UNKNOWN INDICATION
     Route: 065
  9. OXYGEN. [Concomitant]
     Active Substance: OXYGEN
     Indication: CHEST DISCOMFORT
  10. PEPCID [Suspect]
     Active Substance: FAMOTIDINE
     Indication: DYSPNOEA
     Route: 065
  11. DECADRON [Concomitant]
     Active Substance: DEXAMETHASONE
     Indication: CHEST DISCOMFORT
  12. PEPCID [Suspect]
     Active Substance: FAMOTIDINE
     Indication: NASAL CONGESTION
  13. DECADRON [Concomitant]
     Active Substance: DEXAMETHASONE
     Indication: DYSPNOEA
     Route: 065
  14. DECADRON [Concomitant]
     Active Substance: DEXAMETHASONE
     Indication: HYPERTENSION
  15. OXYGEN. [Concomitant]
     Active Substance: OXYGEN
     Indication: HYPERTENSION
  16. DECADRON [Concomitant]
     Active Substance: DEXAMETHASONE
     Indication: NASAL CONGESTION

REACTIONS (2)
  - Product use in unapproved indication [Unknown]
  - Therapeutic response unexpected [Unknown]
